FAERS Safety Report 5941730-X (Version None)
Quarter: 2008Q4

REPORT INFORMATION
  Report Type: 
  Country: None (occurrence: None)
  Receive Date: 20081031
  Receipt Date: 20081022
  Transmission Date: 20090506
  Serious: Yes (Hospitalization)
  Sender: FDA-Public Use
  Company Number: 2008BI014866

PATIENT
  Age: 37 Year
  Sex: Female

DRUGS (1)
  1. AVONEX [Suspect]
     Indication: MULTIPLE SCLEROSIS
     Dosage: 30 UG QW IM
     Route: 030
     Dates: start: 19991201, end: 20080601

REACTIONS (5)
  - COGNITIVE DISORDER [None]
  - DIARRHOEA [None]
  - GASTRIC ULCER PERFORATION [None]
  - HYPOAESTHESIA [None]
  - VOMITING [None]
